FAERS Safety Report 5219714-9 (Version None)
Quarter: 2006Q4

REPORT INFORMATION
  Report Type: 
  Country: None (occurrence: None)
  Receive Date: 20061201
  Receipt Date: 20060703
  Transmission Date: 20070319
  Serious: No
  Sender: FDA-Public Use
  Company Number: 2006PV016909

PATIENT
  Age: 64 Year
  Sex: Female

DRUGS (13)
  1. BYETTA [Suspect]
     Indication: DIABETES MELLITUS NON-INSULIN-DEPENDENT
     Dosage: 10 MCG;BID;SC; 5 MCG;BID;SC
     Route: 058
     Dates: start: 20060501, end: 20060601
  2. BYETTA [Suspect]
     Indication: DIABETES MELLITUS NON-INSULIN-DEPENDENT
     Dosage: 10 MCG;BID;SC; 5 MCG;BID;SC
     Route: 058
     Dates: start: 20060601
  3. METFORMIN HCL [Concomitant]
  4. GLIPIZIDE [Concomitant]
  5. DIURETIC [Concomitant]
  6. COREG [Concomitant]
  7. HEART MEDICATION UNSPECIFIED [Concomitant]
  8. LIPITOR [Concomitant]
  9. METOCLOPRAMINE [Concomitant]
  10. PRECOSE [Concomitant]
  11. ASCORBIC ACID [Concomitant]
  12. VITAMIN B-12 [Concomitant]
  13. ASPIRIN [Concomitant]

REACTIONS (9)
  - ABDOMINAL DISTENSION [None]
  - DRUG INEFFECTIVE [None]
  - DYSPNOEA [None]
  - FATIGUE [None]
  - INJECTION SITE BRUISING [None]
  - NAUSEA [None]
  - OEDEMA PERIPHERAL [None]
  - SOMNOLENCE [None]
  - WEIGHT INCREASED [None]
